FAERS Safety Report 7014360-9 (Version None)
Quarter: 2010Q3

REPORT INFORMATION
  Report Type: 
  Country: None (occurrence: None)
  Receive Date: 20100922
  Receipt Date: 20100907
  Transmission Date: 20110219
  Serious: Yes (Hospitalization)
  Sender: FDA-Public Use
  Company Number: AMAG2010000324

PATIENT
  Age: 65 Year
  Sex: Male
  Weight: 89.8 kg

DRUGS (7)
  1. FERAHEME [Suspect]
     Indication: IRON DEFICIENCY ANAEMIA
     Dosage: 510 MG, SINGLE, INTRAVENOUS; 510 MG, SINGLE, INTRAVENOUS
     Route: 042
     Dates: start: 20100803, end: 20100803
  2. FERAHEME [Suspect]
     Indication: IRON DEFICIENCY ANAEMIA
     Dosage: 510 MG, SINGLE, INTRAVENOUS; 510 MG, SINGLE, INTRAVENOUS
     Route: 042
     Dates: start: 20100810, end: 20100810
  3. COUMADIN (WARFARIN SODIUM) TABLET, 5 MG [Concomitant]
  4. DIGOXIN [Concomitant]
  5. LIPITOR [Concomitant]
  6. LISINOPRIL (LISINOPRIL DIHYDRATE) TABLET [Concomitant]
  7. VITAMIN B-12 (CYANOCOBALAMIN) INJECTION [Concomitant]

REACTIONS (6)
  - ABDOMINAL DISTENSION [None]
  - CONSTIPATION [None]
  - DIARRHOEA [None]
  - PAIN IN EXTREMITY [None]
  - RASH [None]
  - SMALL INTESTINAL OBSTRUCTION [None]
